FAERS Safety Report 9923944 (Version 1)
Quarter: 2014Q1

REPORT INFORMATION
  Report Type: Spontaneous
  Country: US (occurrence: US)
  Receive Date: 20140225
  Receipt Date: 20140225
  Transmission Date: 20141002
  Serious: Yes (Other)
  Sender: FDA-Public Use
  Company Number: US-GILEAD-2012-0054398

PATIENT
  Age: 59 Year
  Sex: Female

DRUGS (4)
  1. HEPSERA [Suspect]
     Indication: HEPATITIS B
  2. VIREAD [Suspect]
     Indication: HEPATITIS B
  3. ENTECAVIR [Concomitant]
     Indication: HEPATITIS B
     Dosage: UNK
     Dates: end: 201111
  4. ENTECAVIR [Concomitant]
     Dosage: UNK
     Dates: start: 201203

REACTIONS (1)
  - Viral load increased [Unknown]
